FAERS Safety Report 8494139-1 (Version None)
Quarter: 2012Q3

REPORT INFORMATION
  Report Type: 
  Country: None (occurrence: None)
  Receive Date: 20120702
  Receipt Date: 20120702
  Transmission Date: 20120928
  Serious: Yes (Disabling, Other)
  Sender: FDA-Public Use
  Company Number: None

PATIENT

DRUGS (1)
  1. LIPITOR [Suspect]

REACTIONS (4)
  - RASH VESICULAR [None]
  - MYALGIA [None]
  - MUSCULOSKELETAL STIFFNESS [None]
  - RASH MACULAR [None]
